FAERS Safety Report 4756043-1 (Version None)
Quarter: 2005Q3

REPORT INFORMATION
  Report Type: 
  Country: None (occurrence: None)
  Receive Date: 20050825
  Receipt Date: 20050428
  Transmission Date: 20060218
  Serious: Yes (Hospitalization)
  Sender: FDA-Public Use
  Company Number: WAES 0504USA05039

PATIENT
  Age: 62 Year
  Sex: Female

DRUGS (14)
  1. VYTORIN [Suspect]
     Indication: BLOOD CHOLESTEROL INCREASED
     Dosage: 10-40 MG/DAILY/PO - SEE IMAGE
     Route: 048
     Dates: start: 20050107, end: 20050202
  2. VYTORIN [Suspect]
     Indication: BLOOD CHOLESTEROL INCREASED
     Dosage: 10-40 MG/DAILY/PO - SEE IMAGE
     Route: 048
     Dates: start: 20050203, end: 20050501
  3. AMARYL [Concomitant]
  4. IMDUR [Concomitant]
  5. LASIX [Concomitant]
  6. LENTE INSULIN [Concomitant]
  7. NORVASC [Concomitant]
  8. PLAVIX [Concomitant]
  9. PRINIVIL [Concomitant]
  10. PRINIVIL [Concomitant]
  11. TOPROL-XL [Concomitant]
  12. ZANTAC [Concomitant]
  13. ASPIRIN [Concomitant]
  14. POTASSIUM (UNSPECIFIED) [Concomitant]

REACTIONS (4)
  - ALANINE AMINOTRANSFERASE INCREASED [None]
  - ASPARTATE AMINOTRANSFERASE INCREASED [None]
  - RENAL FAILURE [None]
  - RHABDOMYOLYSIS [None]
